FAERS Safety Report 4694534-2 (Version None)
Quarter: 2005Q2

REPORT INFORMATION
  Report Type: 
  Country: None (occurrence: None)
  Receive Date: 20050620
  Receipt Date: 20050608
  Transmission Date: 20051028
  Serious: Yes (Death)
  Sender: FDA-Public Use
  Company Number: US-GLAXOSMITHKLINE-A0561748A

PATIENT
  Sex: Male

DRUGS (1)
  1. ECOTRIN [Suspect]
     Indication: COAGULOPATHY
     Route: 048

REACTIONS (1)
  - DEATH [None]
